FAERS Safety Report 13482841 (Version 3)
Quarter: 2018Q1

REPORT INFORMATION
  Report Type: Spontaneous
  Country: US (occurrence: US)
  Receive Date: 20170424
  Receipt Date: 20180123
  Transmission Date: 20180508
  Serious: No
  Sender: FDA-Public Use
  Company Number: US-AMGEN-USASP2017057233

PATIENT
  Age: 51 Year
  Sex: Male

DRUGS (6)
  1. NITROGLYCERIN. [Concomitant]
     Active Substance: NITROGLYCERIN
     Dosage: UNK UNK, AS NECESSARY
  2. FISH OIL [Concomitant]
     Active Substance: FISH OIL
  3. ZETIA [Concomitant]
     Active Substance: EZETIMIBE
  4. ZEBETA [Concomitant]
     Active Substance: BISOPROLOL FUMARATE
  5. ASPIRIN. [Concomitant]
     Active Substance: ASPIRIN
  6. REPATHA [Suspect]
     Active Substance: EVOLOCUMAB
     Indication: ARTERIOSCLEROSIS
     Dosage: 140 MG, Q2WK
     Route: 065

REACTIONS (3)
  - Muscle spasms [Unknown]
  - Sinus congestion [Unknown]
  - Back pain [Unknown]
